FAERS Safety Report 4688695-9 (Version None)
Quarter: 2005Q2

REPORT INFORMATION
  Report Type: 
  Country: None (occurrence: None)
  Receive Date: 20050613
  Receipt Date: 20040524
  Transmission Date: 20051028
  Serious: Yes (Hospitalization)
  Sender: FDA-Public Use
  Company Number: PHHO2004US08730

PATIENT
  Age: 71 Year
  Sex: Female

DRUGS (10)
  1. FAMCYCLOVIR [Suspect]
     Indication: HERPES ZOSTER
     Dosage: 500 MG, TID
     Route: 048
  2. MIACALCIN [Concomitant]
  3. MOBIC [Concomitant]
  4. HYDROCHLOROTHIAZIDE [Concomitant]
     Dosage: NOT REPORTED
     Dates: end: 20040504
  5. CELEXA [Concomitant]
  6. MIRALAX [Concomitant]
  7. MULTI-VITAMIN [Concomitant]
  8. CALCIUM GLUCONATE [Concomitant]
  9. ASCORBIC ACID [Concomitant]
  10. PHENERGAN [Concomitant]

REACTIONS (4)
  - CAROTID ARTERY STENOSIS [None]
  - DIZZINESS [None]
  - HYPOVOLAEMIA [None]
  - ORAL INTAKE REDUCED [None]
